FAERS Safety Report 5006312-5 (Version None)
Quarter: 2006Q2

REPORT INFORMATION
  Report Type: 
  Country: None (occurrence: None)
  Receive Date: 20060517
  Receipt Date: 20060517
  Transmission Date: 20061013
  Serious: Yes (Death)
  Sender: FDA-Public Use
  Company Number: None

PATIENT
  Sex: Male

DRUGS (2)
  1. ALIMTA [Suspect]
     Indication: NON-SMALL CELL LUNG CANCER
     Dosage: 500 MG/M2 Q21 D IV
     Route: 042
     Dates: start: 20060303, end: 20060324
  2. BORTIZOMIB 1.3 MG/M2 D1, D8 Q 21 [Suspect]
     Dosage: 1.3 MG/M2 D1, D8 Q21D IV
     Route: 042
     Dates: start: 20060303, end: 20060331

REACTIONS (4)
  - ASTHENIA [None]
  - DISEASE PROGRESSION [None]
  - MENTAL STATUS CHANGES [None]
  - MOOD ALTERED [None]
